FAERS Safety Report 13950201 (Version 1)
Quarter: 2017Q3

REPORT INFORMATION
  Report Type: Spontaneous
  Country: US (occurrence: US)
  Receive Date: 20170908
  Receipt Date: 20170908
  Transmission Date: 20171128
  Serious: No
  Sender: FDA-Public Use
  Company Number: US-ROCHE-1134277

PATIENT
  Sex: Male

DRUGS (15)
  1. DIFLUCAN [Concomitant]
     Active Substance: FLUCONAZOLE
     Route: 050
  2. MORPHINE [Concomitant]
     Active Substance: MORPHINE
     Indication: PAIN
     Route: 050
  3. DECADRON [Concomitant]
     Active Substance: DEXAMETHASONE
     Route: 050
  4. RITUXAN [Suspect]
     Active Substance: RITUXIMAB
     Dosage: 8 HOUR TIME PERIOD.
     Route: 042
  5. LEVAQUIN [Concomitant]
     Active Substance: LEVOFLOXACIN
     Route: 050
  6. DEMEROL [Concomitant]
     Active Substance: MEPERIDINE HYDROCHLORIDE
     Route: 050
  7. ZYDONE [Concomitant]
     Active Substance: ACETAMINOPHEN\HYDROCODONE BITARTRATE
     Dosage: 10/400 SAMPLES
     Route: 050
  8. FAMVIR [Concomitant]
     Active Substance: FAMCICLOVIR
     Route: 050
  9. RITUXAN [Suspect]
     Active Substance: RITUXIMAB
     Indication: CHRONIC LYMPHOCYTIC LEUKAEMIA
     Route: 042
     Dates: start: 20010508
  10. PROCRIT [Concomitant]
     Active Substance: ERYTHROPOIETIN
     Dosage: 40000 UNITS SUB OR IV.
     Route: 050
  11. NEUPOGEN [Concomitant]
     Active Substance: FILGRASTIM
     Route: 050
  12. ZOFRAN [Concomitant]
     Active Substance: ONDANSETRON HYDROCHLORIDE
     Route: 050
  13. LIDOCAINE. [Concomitant]
     Active Substance: LIDOCAINE
     Route: 050
  14. BENADRYL [Concomitant]
     Active Substance: DIPHENHYDRAMINE HYDROCHLORIDE
     Route: 050
  15. LORTAB [Concomitant]
     Active Substance: ACETAMINOPHEN\HYDROCODONE BITARTRATE
     Route: 050

REACTIONS (14)
  - Nausea [Recovered/Resolved]
  - Abdominal pain [Unknown]
  - Pyrexia [Unknown]
  - Candida infection [Unknown]
  - Chills [Recovered/Resolved]
  - Constipation [Unknown]
  - Pain in jaw [Recovered/Resolved]
  - Chills [Unknown]
  - Malaise [Unknown]
  - Back pain [Recovered/Resolved]
  - Oral pain [Unknown]
  - Herpes virus infection [Unknown]
  - Abdominal pain upper [Unknown]
  - Mucosal inflammation [Unknown]
